FAERS Safety Report 7096436-3 (Version None)
Quarter: 2010Q4

REPORT INFORMATION
  Report Type: 
  Country: None (occurrence: None)
  Receive Date: 20101101
  Receipt Date: 20101022
  Transmission Date: 20110411
  Serious: Yes (Hospitalization)
  Sender: FDA-Public Use
  Company Number: LEO-2010-00960

PATIENT
  Age: 51 Year
  Sex: Male

DRUGS (3)
  1. INNOHEP [Suspect]
     Indication: ANTICOAGULANT THERAPY
     Dosage: (1 IN 1 D), SUBCUTANEOUS
     Route: 058
  2. ASPIRIN [Suspect]
     Indication: ANTIPLATELET THERAPY
     Dosage: 200 MG (100 MG, 2 IN 1 D)
  3. DIPYRIDAMOLE [Suspect]
     Indication: ANTIPLATELET THERAPY
     Dosage: 225 MG (75 MG, 3 IN 1 D)

REACTIONS (5)
  - COMPARTMENT SYNDROME [None]
  - DRUG INEFFECTIVE [None]
  - IATROGENIC INJURY [None]
  - NERVE COMPRESSION [None]
  - SCIATIC NERVE INJURY [None]
